FAERS Safety Report 7134551-6 (Version None)
Quarter: 2010Q4

REPORT INFORMATION
  Report Type: 
  Country: None (occurrence: None)
  Receive Date: 20101130
  Receipt Date: 20101130
  Transmission Date: 20110411
  Serious: Yes (Hospitalization)
  Sender: FDA-Public Use
  Company Number: None

PATIENT
  Age: 60 Year
  Sex: Male
  Weight: 72.1219 kg

DRUGS (14)
  1. HEPARIN [Suspect]
     Indication: VASCULAR GRAFT
     Dosage: PER BYPASS SYRGERY PROTOCOL IV
     Route: 042
     Dates: start: 20100518, end: 20100518
  2. EFFIENT [Suspect]
     Indication: THROMBOSIS PROPHYLAXIS
     Dosage: 10MG DAILY PO
     Route: 048
     Dates: end: 20100603
  3. ASPIRIN [Concomitant]
  4. HYDROCODONE [Concomitant]
  5. DICLOFENAC/MISOPROSTOL [Concomitant]
  6. ERGOCALCIFEROL [Concomitant]
  7. TRICOR [Concomitant]
  8. FUROSEMIDE [Concomitant]
  9. INSULIN ASPART [Concomitant]
  10. GLARGINE [Concomitant]
  11. METOPROLOL TARTRATE [Concomitant]
  12. OMEPRAZOLE [Concomitant]
  13. RAMIPRIL [Concomitant]
  14. SERTRALINE HYDROCHLORIDE [Concomitant]

REACTIONS (6)
  - ANAEMIA [None]
  - DYSPNOEA EXERTIONAL [None]
  - HEPARIN-INDUCED THROMBOCYTOPENIA [None]
  - PLEURAL EFFUSION [None]
  - PULMONARY OEDEMA [None]
  - WEIGHT INCREASED [None]
